FAERS Safety Report 7511586-2 (Version None)
Quarter: 2011Q2

REPORT INFORMATION
  Report Type: 
  Country: None (occurrence: None)
  Receive Date: 20110531
  Receipt Date: 20110525
  Transmission Date: 20111010
  Serious: Yes (Other)
  Sender: FDA-Public Use
  Company Number: US-PFIZER INC-2011098843

PATIENT
  Sex: Female

DRUGS (2)
  1. CHANTIX [Suspect]
     Dosage: 0.5 MG, UNK
     Route: 048
  2. CHANTIX [Suspect]
     Dosage: 1 MG, UNK
     Route: 048

REACTIONS (2)
  - DYSPNOEA [None]
  - OROPHARYNGEAL BLISTERING [None]
